FAERS Safety Report 24301930 (Version 3)
Quarter: 2024Q4

REPORT INFORMATION
  Report Type: Spontaneous
  Country: US (occurrence: US)
  Receive Date: 20240910
  Receipt Date: 20241001
  Transmission Date: 20250115
  Serious: No
  Sender: JOHNSON AND JOHNSON
  Company Number: US-JNJFOC-20240841635

PATIENT
  Age: 6 Decade
  Sex: Female

DRUGS (2)
  1. MENS ROGAINE EXTRA STRENGTH [Suspect]
     Active Substance: MINOXIDIL
     Indication: Alopecia
     Dosage: SHE USED SPONGE TO PUT THE PRODUCT INTO HER HAIR. ONCE A DAY.
     Route: 061
     Dates: start: 20240813
  2. MENS ROGAINE EXTRA STRENGTH [Suspect]
     Active Substance: MINOXIDIL
     Dosage: SHE USED SPONGE TO PUT THE PRODUCT INTO HER HAIR. ONCE A DAY.
     Route: 061

REACTIONS (8)
  - Seborrhoea [Unknown]
  - Intentional product misuse [Unknown]
  - Product use issue [Unknown]
  - Wrong technique in product usage process [Unknown]
  - Suspected counterfeit product [Unknown]
  - Poor quality product administered [Unknown]
  - Product formulation issue [Unknown]
  - Product packaging issue [Unknown]

NARRATIVE: CASE EVENT DATE: 20240813
